FAERS Safety Report 9208057 (Version 4)
Quarter: 2013Q4

REPORT INFORMATION
  Report Type: Spontaneous
  Country: US (occurrence: US)
  Receive Date: 20130403
  Receipt Date: 20131017
  Transmission Date: 20140711
  Serious: Yes (Hospitalization, Other)
  Sender: FDA-Public Use
  Company Number: US-B.I. PHARMACEUTICALS,INC./RIDGEFIELD-2013-BI-08817BP

PATIENT
  Sex: Female
  Weight: 114.31 kg

DRUGS (13)
  1. PRADAXA [Suspect]
     Indication: ANTICOAGULANT THERAPY
     Dosage: 300 MG
     Route: 048
     Dates: start: 20110114
  2. HYDRALAZINE [Concomitant]
     Dosage: 100 MG
     Dates: start: 2004
  3. AMLODIPINE [Concomitant]
     Dates: start: 2004
  4. CARVEDILOL [Concomitant]
     Dosage: 25 MG
     Dates: start: 2004
  5. QUINAPRIL [Concomitant]
     Dosage: 40 MG
     Dates: start: 2004
  6. CLONIDINE ACC 1 [Concomitant]
     Dates: start: 2004
  7. DOXAZOSIN MESYLATE [Concomitant]
     Dates: start: 2004
  8. DIGOXIN [Concomitant]
     Dates: start: 2004
  9. CARISOPRODOL [Concomitant]
     Dosage: 350 MG
     Route: 048
  10. PREDNISONE [Concomitant]
     Dosage: 20 MG
     Route: 048
  11. CELEBREX [Concomitant]
     Dosage: 200 MG
     Route: 048
  12. TEMAZEPAM [Concomitant]
     Dosage: 30 MG
     Route: 048
  13. ALPRAZOLAM [Concomitant]
     Dosage: 1 MG
     Route: 048

REACTIONS (3)
  - Gastrointestinal haemorrhage [Unknown]
  - Respiratory failure [Unknown]
  - Renal haemorrhage [Recovered/Resolved]
